FAERS Safety Report 9781084 (Version 1)
Quarter: 2013Q4

REPORT INFORMATION
  Report Type: Spontaneous
  Country: US (occurrence: None)
  Receive Date: 20131223
  Receipt Date: 20131223
  Transmission Date: 20140711
  Serious: Yes (Other)
  Sender: FDA-Public Use
  Company Number: None

PATIENT
  Age: 54 Year
  Sex: Female

DRUGS (2)
  1. CIPRO [Suspect]
     Indication: SINUSITIS
     Dosage: 2 PILLS ONCE DAILY?
     Dates: end: 20131210
  2. CIPRO [Suspect]
     Indication: PHARYNGITIS
     Dosage: 2 PILLS ONCE DAILY?
     Dates: end: 20131210

REACTIONS (3)
  - Ageusia [None]
  - Dysgeusia [None]
  - Anosmia [None]
